FAERS Safety Report 14023253 (Version 1)
Quarter: 2017Q3

REPORT INFORMATION
  Report Type: Spontaneous
  Country: US (occurrence: US)
  Receive Date: 20170928
  Receipt Date: 20170928
  Transmission Date: 20171128
  Serious: No
  Sender: FDA-Public Use
  Company Number: US-SA-2016SA204067

PATIENT
  Age: 51 Year
  Sex: Female

DRUGS (14)
  1. FLONASE [Concomitant]
     Active Substance: FLUTICASONE PROPIONATE
  2. ALLEGRA [Concomitant]
     Active Substance: FEXOFENADINE HYDROCHLORIDE
  3. LISINOPRIL. [Concomitant]
     Active Substance: LISINOPRIL
  4. VALTREX [Concomitant]
     Active Substance: VALACYCLOVIR HYDROCHLORIDE
  5. DRAMAMINE [Concomitant]
     Active Substance: DIMENHYDRINATE
  6. AUBAGIO [Suspect]
     Active Substance: TERIFLUNOMIDE
     Indication: MULTIPLE SCLEROSIS
     Route: 048
     Dates: start: 20161014
  7. LOESTRIN NOS [Concomitant]
     Active Substance: ETHINYL ESTRADIOL\NORETHINDRONE ACETATE
  8. ELIDEL [Concomitant]
     Active Substance: PIMECROLIMUS
  9. SINGULAIR [Concomitant]
     Active Substance: MONTELUKAST SODIUM
  10. MUCINEX [Concomitant]
     Active Substance: GUAIFENESIN
  11. PREVACID [Concomitant]
     Active Substance: LANSOPRAZOLE
  12. SUDAFED [Concomitant]
     Active Substance: PSEUDOEPHEDRINE HYDROCHLORIDE
  13. MYRBETRIQ [Concomitant]
     Active Substance: MIRABEGRON
  14. AUBAGIO [Suspect]
     Active Substance: TERIFLUNOMIDE
     Indication: MULTIPLE SCLEROSIS
     Route: 048
     Dates: start: 20160610

REACTIONS (2)
  - Heart rate increased [Unknown]
  - Blood pressure increased [Unknown]
